FAERS Safety Report 24849352 (Version 2)
Quarter: 2025Q1

REPORT INFORMATION
  Report Type: Spontaneous
  Country: CN (occurrence: CN)
  Receive Date: 20250116
  Receipt Date: 20250117
  Transmission Date: 20250408
  Serious: Yes (Hospitalization, Other)
  Sender: PFIZER
  Company Number: CN-MLMSERVICE-20250106-PI331509-00230-1

PATIENT
  Age: 15 Year
  Sex: Female

DRUGS (15)
  1. PIPERACILLIN SODIUM\TAZOBACTAM SODIUM [Suspect]
     Active Substance: PIPERACILLIN SODIUM\TAZOBACTAM SODIUM
  2. AZITHROMYCIN [Suspect]
     Active Substance: AZITHROMYCIN
     Indication: Pneumonia mycoplasmal
  3. AZITHROMYCIN [Suspect]
     Active Substance: AZITHROMYCIN
     Dosage: 0.5 G, 1X/DAY DAY 1 TO DAY 3
  4. TIGECYCLINE [Suspect]
     Active Substance: TIGECYCLINE
     Indication: Acinetobacter infection
     Dosage: 50 MG, 2X/DAY
  5. IMIPENEM [Suspect]
     Active Substance: IMIPENEM
  6. MOXIFLOXACIN [Suspect]
     Active Substance: MOXIFLOXACIN
     Indication: Pneumonia mycoplasmal
     Dosage: 0.4 G, 1X/DAY
  7. MOXIFLOXACIN [Suspect]
     Active Substance: MOXIFLOXACIN
     Indication: Acinetobacter infection
     Dosage: 0.4 G, 1X/DAY
  8. MOXIFLOXACIN [Suspect]
     Active Substance: MOXIFLOXACIN
     Dosage: 0.4 G, 1X/DAY
  9. DOXYCYCLINE [Suspect]
     Active Substance: DOXYCYCLINE
     Indication: Pneumonia mycoplasmal
     Dosage: 200 MG, 2X/DAY
  10. VANCOMYCIN [Suspect]
     Active Substance: VANCOMYCIN
     Indication: Bacterial infection
     Dosage: 1 G, 2X/DAY
  11. VANCOMYCIN [Suspect]
     Active Substance: VANCOMYCIN
     Indication: Haematological infection
  12. POLYMYXIN B [Suspect]
     Active Substance: POLYMYXIN B
     Indication: Acinetobacter infection
     Dosage: 50 MG, 2X/DAY
     Route: 048
  13. POLYMYXIN B [Suspect]
     Active Substance: POLYMYXIN B
     Dosage: 25 MG, 2X/DAY
     Route: 055
  14. CARRIMYCIN [Suspect]
     Active Substance: CARRIMYCIN
     Indication: Acinetobacter infection
     Dosage: 0.4 G, 1X/DAY
  15. METHYLPREDNISOLONE [Concomitant]
     Active Substance: METHYLPREDNISOLONE
     Indication: Pneumonia mycoplasmal
     Dosage: 80 MG, 1X/DAY

REACTIONS (1)
  - Acute kidney injury [Recovered/Resolved]
